FAERS Safety Report 13431202 (Version 3)
Quarter: 2019Q4

REPORT INFORMATION
  Report Type: Spontaneous
  Country: US (occurrence: US)
  Receive Date: 20170412
  Receipt Date: 20191202
  Transmission Date: 20200122
  Serious: Yes (Other)
  Sender: FDA-Public Use
  Company Number: US-PFIZER INC-2017160928

PATIENT
  Age: 38 Year
  Sex: Male

DRUGS (9)
  1. VIAGRA [Suspect]
     Active Substance: SILDENAFIL CITRATE
     Dosage: 100 MG, AS NEEDED (3X WEEK)
     Route: 048
     Dates: start: 20080725, end: 201006
  2. VIAGRA [Suspect]
     Active Substance: SILDENAFIL CITRATE
     Indication: ERECTILE DYSFUNCTION
     Dosage: UNK
     Route: 048
     Dates: start: 2000, end: 201511
  3. CIALIS [Suspect]
     Active Substance: TADALAFIL
     Indication: ERECTILE DYSFUNCTION
     Dosage: 20 MG, AS NEEDED (2X WEEK)
     Route: 048
     Dates: start: 20130611, end: 20161101
  4. VIAGRA [Suspect]
     Active Substance: SILDENAFIL CITRATE
     Dosage: 100 MG, AS NEEDED (3X WEEK)
     Route: 048
     Dates: start: 20120711, end: 201305
  5. LEVITRA [Suspect]
     Active Substance: VARDENAFIL HYDROCHLORIDE
     Indication: ERECTILE DYSFUNCTION
     Dosage: 20 MG, AS NEEDED (3X WEEK)
     Dates: start: 20081110, end: 20120430
  6. VIAGRA [Suspect]
     Active Substance: SILDENAFIL CITRATE
     Dosage: 100 MG, AS NEEDED (3X WEEK)
     Route: 048
     Dates: start: 20100611, end: 201207
  7. VIAGRA [Suspect]
     Active Substance: SILDENAFIL CITRATE
     Dosage: 100 MG, AS NEEDED (3X WEEK)
     Route: 048
     Dates: start: 20130508, end: 201408
  8. VIAGRA [Suspect]
     Active Substance: SILDENAFIL CITRATE
     Dosage: 100 MG, AS NEEDED (3X WEEK)
     Route: 048
     Dates: start: 2002, end: 20080725
  9. VIAGRA [Suspect]
     Active Substance: SILDENAFIL CITRATE
     Dosage: 100 MG, AS NEEDED (3X WEEK)
     Route: 048
     Dates: start: 20140801, end: 201511

REACTIONS (5)
  - Nodular melanoma [Unknown]
  - Emotional distress [Unknown]
  - Malignant melanoma [Unknown]
  - Neoplasm progression [Unknown]
  - Anxiety [Unknown]

NARRATIVE: CASE EVENT DATE: 20070130
